FAERS Safety Report 20750095 (Version 1)
Quarter: 2022Q2

REPORT INFORMATION
  Report Type: Other
  Country: CA (occurrence: CA)
  Receive Date: 20220426
  Receipt Date: 20220426
  Transmission Date: 20220721
  Serious: Yes (Death, Other)
  Sender: FDA-Public Use
  Company Number: CA-APOTEX-2022AP002095

PATIENT
  Age: 49 Year
  Sex: Female

DRUGS (9)
  1. RESTORIL [Interacting]
     Active Substance: TEMAZEPAM
     Indication: Sleep disorder
     Dosage: 45 MILLIGRAM, QD
     Route: 065
  2. CITALOPRAM [Interacting]
     Active Substance: CITALOPRAM HYDROBROMIDE
     Indication: Product used for unknown indication
     Dosage: UNK
     Route: 065
  3. QUETIAPINE [Interacting]
     Active Substance: QUETIAPINE
     Indication: Psychiatric disorder prophylaxis
     Dosage: 25 MILLIGRAM, QD
     Route: 048
  4. CELEXA [Interacting]
     Active Substance: CITALOPRAM HYDROBROMIDE
     Indication: Antidepressant therapy
     Dosage: 40 MILLIGRAM
     Route: 065
  5. LAMICTAL [Interacting]
     Active Substance: LAMOTRIGINE
     Indication: Seizure prophylaxis
     Dosage: 100 MILLIGRAM, BID
     Route: 065
  6. RISPERDAL [Interacting]
     Active Substance: RISPERIDONE
     Indication: Psychiatric disorder prophylaxis
     Dosage: 3 MILLIGRAM, BID
     Route: 065
  7. SEROQUEL [Interacting]
     Active Substance: QUETIAPINE FUMARATE
     Indication: Psychiatric disorder prophylaxis
     Dosage: 25 MILLIGRAM, QD
     Route: 065
  8. COGENTIN [Concomitant]
     Active Substance: BENZTROPINE MESYLATE
     Indication: Product used for unknown indication
     Dosage: 2 MILLIGRAM, QD
     Route: 065
  9. SYNTHROID [Concomitant]
     Active Substance: LEVOTHYROXINE SODIUM
     Indication: Product used for unknown indication
     Dosage: 100 MILLIGRAM, BID
     Route: 065

REACTIONS (16)
  - Death [Fatal]
  - Accidental death [Fatal]
  - Electrocardiogram QT prolonged [Unknown]
  - Pneumonia [Unknown]
  - Ventricular arrhythmia [Unknown]
  - Respiratory depression [Unknown]
  - Mental impairment [Unknown]
  - Antidepressant drug level above therapeutic [Unknown]
  - Confusional state [Unknown]
  - Drug interaction [Unknown]
  - Food interaction [Unknown]
  - Labelled drug-drug interaction issue [Unknown]
  - Malaise [Unknown]
  - Postmortem blood drug level [Unknown]
  - Potentiating drug interaction [Unknown]
  - Somnolence [Unknown]
